FAERS Safety Report 4483745-7 (Version None)
Quarter: 2004Q4

REPORT INFORMATION
  Report Type: 
  Country: None (occurrence: None)
  Receive Date: 20041020
  Receipt Date: 20041007
  Transmission Date: 20050328
  Serious: Yes (Other)
  Sender: FDA-Public Use
  Company Number: 202867

PATIENT
  Age: 31 Year
  Sex: Female

DRUGS (11)
  1. AVONEX [Suspect]
     Indication: MULTIPLE SCLEROSIS
     Dosage: 30 MCG QW IM
     Route: 030
     Dates: start: 20020501
  2. AVONEX [Suspect]
     Indication: MULTIPLE SCLEROSIS
     Dosage: 30 MCG QW IM
     Route: 030
     Dates: end: 20040101
  3. NEURONTIN [Concomitant]
  4. KLONOPIN [Concomitant]
  5. ZANAFLEX [Concomitant]
  6. ZANTAC [Concomitant]
  7. PROVIGIL [Concomitant]
  8. BACLOFEN [Concomitant]
  9. DITROPAN [Concomitant]
  10. IMODIUM A-D [Concomitant]
  11. TOPAMAX [Concomitant]

REACTIONS (1)
  - PITUITARY TUMOUR BENIGN [None]
